FAERS Safety Report 12336156 (Version 2)
Quarter: 2016Q2

REPORT INFORMATION
  Report Type: Spontaneous
  Country: US (occurrence: US)
  Receive Date: 20160505
  Receipt Date: 20160526
  Transmission Date: 20160815
  Serious: No
  Sender: FDA-Public Use
  Company Number: US-PFIZER INC-2016212976

PATIENT
  Age: 78 Year
  Sex: Female

DRUGS (6)
  1. FENTANYL. [Concomitant]
     Active Substance: FENTANYL
     Dosage: 75
  2. FENTANYL. [Concomitant]
     Active Substance: FENTANYL
     Indication: BACK DISORDER
     Dosage: 25
  3. FENTANYL. [Concomitant]
     Active Substance: FENTANYL
     Dosage: 50
  4. FENTANYL. [Concomitant]
     Active Substance: FENTANYL
     Dosage: 100
  5. LYRICA [Suspect]
     Active Substance: PREGABALIN
     Indication: NEUROPATHY PERIPHERAL
     Dosage: UNK, 3X/DAY
     Route: 048
  6. LYRICA [Suspect]
     Active Substance: PREGABALIN
     Indication: NEURALGIA
     Dosage: 225 MG, DAILY (75MG IN THE MORNING AND 150MG IN THE EVENING)
     Route: 048
     Dates: start: 201602, end: 20160412

REACTIONS (5)
  - Joint swelling [Not Recovered/Not Resolved]
  - Pain in extremity [Not Recovered/Not Resolved]
  - Myalgia [Not Recovered/Not Resolved]
  - Weight increased [Not Recovered/Not Resolved]
  - Vision blurred [Unknown]

NARRATIVE: CASE EVENT DATE: 201602
